FAERS Safety Report 7316647-9 (Version None)
Quarter: 2011Q1

REPORT INFORMATION
  Report Type: 
  Country: None (occurrence: None)
  Receive Date: 20110226
  Receipt Date: 20100722
  Transmission Date: 20110831
  Serious: No
  Sender: FDA-Public Use
  Company Number: US-ALLERGAN-1009595US

PATIENT
  Age: 52 Year
  Sex: Female

DRUGS (2)
  1. BOTOX COSMETIC [Suspect]
     Indication: SKIN WRINKLING
     Dosage: UNK
     Route: 030
     Dates: start: 20100707, end: 20100707
  2. LYRICA [Concomitant]
     Indication: FIBROMYALGIA

REACTIONS (13)
  - TONGUE ULCERATION [None]
  - LYMPHADENOPATHY [None]
  - SENSATION OF HEAVINESS [None]
  - DYSPHONIA [None]
  - INJECTION SITE REACTION [None]
  - SKIN DISORDER [None]
  - COUGH [None]
  - BURNING SENSATION [None]
  - SKIN DISCOLOURATION [None]
  - TONSILLAR DISORDER [None]
  - THROAT IRRITATION [None]
  - HEADACHE [None]
  - CONTUSION [None]
